FAERS Safety Report 9283853 (Version 4)
Quarter: 2013Q3

REPORT INFORMATION
  Report Type: Spontaneous
  Country: US (occurrence: US)
  Receive Date: 20130510
  Receipt Date: 20130723
  Transmission Date: 20140515
  Serious: Yes (Hospitalization)
  Sender: FDA-Public Use
  Company Number: US-GILEAD-2013-0074880

PATIENT
  Sex: Female

DRUGS (5)
  1. LETAIRIS [Suspect]
     Indication: PULMONARY ARTERIAL HYPERTENSION
     Dosage: 5 MG, QD
     Dates: start: 20110823
  2. LETAIRIS [Suspect]
     Indication: HIV INFECTION
  3. REMODULIN [Concomitant]
     Route: 058
  4. TYVASO [Concomitant]
  5. WARFARIN [Concomitant]

REACTIONS (2)
  - Central venous catheterisation [Unknown]
  - Joint swelling [Unknown]
